FAERS Safety Report 14510013 (Version 1)
Quarter: 2018Q1

REPORT INFORMATION
  Report Type: Spontaneous
  Country: US (occurrence: US)
  Receive Date: 20180209
  Receipt Date: 20180209
  Transmission Date: 20180509
  Serious: No
  Sender: FDA-Public Use
  Company Number: US-PFIZER INC-2018054996

PATIENT
  Age: 69 Year
  Sex: Female

DRUGS (1)
  1. ESTRING [Suspect]
     Active Substance: ESTRADIOL
     Indication: VULVOVAGINAL DRYNESS
     Dosage: 1 DF, SINGLE
     Route: 067
     Dates: start: 20170703, end: 20170703

REACTIONS (4)
  - Product use issue [Recovered/Resolved]
  - Drug intolerance [Unknown]
  - Device issue [Unknown]
  - Vulvovaginal pain [Unknown]

NARRATIVE: CASE EVENT DATE: 20170703
